FAERS Safety Report 4898879-2 (Version None)
Quarter: 2006Q1

REPORT INFORMATION
  Report Type: 
  Country: None (occurrence: None)
  Receive Date: 20060104
  Receipt Date: 20051019
  Transmission Date: 20060701
  Serious: Yes (Other)
  Sender: FDA-Public Use
  Company Number: A03200503322

PATIENT
  Age: 80 Year
  Sex: Female
  Weight: 63.6261 kg

DRUGS (2)
  1. ELOXATIN [Suspect]
     Indication: COLON CANCER
     Dosage: 85 MG/M2 OTHER - INTRAVENOUS
     Route: 042
     Dates: start: 20050913, end: 20050913
  2. ELOXATIN [Suspect]
     Indication: COLON CANCER
     Dosage: INTRAVENOUS NOS
     Route: 042
     Dates: start: 20051007, end: 20051007

REACTIONS (4)
  - AGITATION [None]
  - HYPERTENSION [None]
  - PARAESTHESIA [None]
  - SENSATION OF HEAVINESS [None]
